FAERS Safety Report 7945616-0 (Version None)
Quarter: 2011Q4

REPORT INFORMATION
  Report Type: 
  Country: None (occurrence: None)
  Receive Date: 20111125
  Receipt Date: 20111114
  Transmission Date: 20120403
  Serious: Yes (Other)
  Sender: FDA-Public Use
  Company Number: 2011P1011182

PATIENT

DRUGS (5)
  1. PROPOFOL [Concomitant]
  2. ROCURONIUM BROMIDE [Concomitant]
  3. FENTANYL [Suspect]
     Indication: GENERAL ANAESTHESIA
     Dosage: ;IV
     Route: 042
  4. ATROPINE [Concomitant]
  5. NEOSTIGMINE [Concomitant]

REACTIONS (2)
  - ATELECTASIS [None]
  - POST PROCEDURAL COMPLICATION [None]
